FAERS Safety Report 7789313-3 (Version None)
Quarter: 2011Q3

REPORT INFORMATION
  Report Type: 
  Country: None (occurrence: None)
  Receive Date: 20110930
  Receipt Date: 20110920
  Transmission Date: 20111222
  Serious: Yes (Life-Threatening, Other)
  Sender: FDA-Public Use
  Company Number: US-GLAXOSMITHKLINE-A0942528A

PATIENT
  Age: 65 Year
  Sex: Male
  Weight: 63.6 kg

DRUGS (4)
  1. CORN [Suspect]
     Route: 065
  2. ADVAIR DISKUS 100/50 [Concomitant]
     Route: 055
  3. VENTOLIN HFA [Suspect]
     Indication: CHRONIC OBSTRUCTIVE PULMONARY DISEASE
     Dosage: 2PUFF FOUR TIMES PER DAY
     Route: 055
     Dates: end: 20110901
  4. XOPENEX [Concomitant]

REACTIONS (10)
  - HYPERSENSITIVITY [None]
  - DRUG HYPERSENSITIVITY [None]
  - RASH [None]
  - INFLAMMATION [None]
  - SYNCOPE [None]
  - HYPOTENSION [None]
  - DERMATITIS CONTACT [None]
  - DYSPNOEA [None]
  - BRONCHOSPASM [None]
  - DIZZINESS [None]
